FAERS Safety Report 15269175 (Version 10)
Quarter: 2019Q3

REPORT INFORMATION
  Report Type: Report from Study
  Country: IT (occurrence: IT)
  Receive Date: 20180813
  Receipt Date: 20190722
  Transmission Date: 20191004
  Serious: Yes (Hospitalization, Disabling)
  Sender: FDA-Public Use
  Company Number: IT-ROCHE-2158869

PATIENT
  Age: 69 Year
  Sex: Female
  Weight: 70 kg

DRUGS (17)
  1. LEVOTIROXINA [LEVOTHYROXINE] [Concomitant]
     Route: 048
     Dates: start: 2002
  2. METFORMIN [Concomitant]
     Active Substance: METFORMIN HYDROCHLORIDE
     Route: 048
     Dates: start: 20170303, end: 20170807
  3. BETAISTINA [Concomitant]
     Indication: DIZZINESS
     Route: 048
     Dates: start: 20180303
  4. EFEXOR [Concomitant]
     Active Substance: VENLAFAXINE HYDROCHLORIDE
     Route: 048
     Dates: start: 2010
  5. STRIVERDI RESPIMAT [Concomitant]
     Active Substance: OLODATEROL HYDROCHLORIDE
     Dosage: 1 PUFF
     Route: 050
     Dates: start: 201505
  6. BRUFEN [IBUPROFEN] [Concomitant]
     Active Substance: IBUPROFEN
     Route: 048
     Dates: start: 20170405
  7. ATEZOLIZUMAB. [Suspect]
     Active Substance: ATEZOLIZUMAB
     Indication: NEOPLASM
     Dosage: 20/JUN/2018, 15 05, MOST RECENT DOSE OF ATEZOLIZUMAB PRIOR TO AE ONSET
     Route: 041
     Dates: start: 20170110
  8. SPIOLTO RESPIMAT [Concomitant]
     Active Substance: OLODATEROL HYDROCHLORIDE\TIOTROPIUM BROMIDE MONOHYDRATE
     Dosage: 1 PUFF
     Route: 050
     Dates: start: 20170112
  9. PANTOPRAZOLO [Concomitant]
     Active Substance: PANTOPRAZOLE SODIUM
     Indication: GASTRITIS PROPHYLAXIS
     Route: 048
     Dates: start: 20170421
  10. FUROSEMIDE. [Concomitant]
     Active Substance: FUROSEMIDE
     Indication: DYSPNOEA
     Route: 048
     Dates: start: 20171006, end: 20171016
  11. AMLODIPINA [AMLODIPINE] [Concomitant]
     Indication: HYPERTENSION
     Route: 048
     Dates: start: 20180104, end: 20180307
  12. PROVISACOR [Concomitant]
     Active Substance: ROSUVASTATIN
     Route: 048
     Dates: start: 2012
  13. STRIVERDI RESPIMAT [Concomitant]
     Active Substance: OLODATEROL HYDROCHLORIDE
     Dosage: 1PUFF
     Route: 050
     Dates: start: 201505, end: 20170112
  14. METFORMIN [Concomitant]
     Active Substance: METFORMIN HYDROCHLORIDE
     Route: 048
     Dates: start: 20170808
  15. FUROSEMIDE. [Concomitant]
     Active Substance: FUROSEMIDE
     Route: 048
     Dates: start: 20171117
  16. AMLODIPINA [AMLODIPINE] [Concomitant]
     Route: 048
     Dates: start: 20180310, end: 20180414
  17. AMLODIPINA [AMLODIPINE] [Concomitant]
     Route: 048
     Dates: start: 20180415

REACTIONS (1)
  - Cerebellar ataxia [Not Recovered/Not Resolved]

NARRATIVE: CASE EVENT DATE: 20180711
